FAERS Safety Report 10458698 (Version 1)
Quarter: 2014Q3

REPORT INFORMATION
  Report Type: Spontaneous
  Country: US (occurrence: None)
  Receive Date: 20140915
  Receipt Date: 20140915
  Transmission Date: 20150326
  Serious: Yes (Hospitalization, Other)
  Sender: FDA-Public Use
  Company Number: 2014248355

PATIENT
  Age: 7 Decade
  Sex: Male
  Weight: 85 kg

DRUGS (13)
  1. ATORVASTATIN [Concomitant]
     Active Substance: ATORVASTATIN
  2. HYOSCINE [Concomitant]
     Active Substance: SCOPOLAMINE
  3. BISOPROLOL [Concomitant]
     Active Substance: BISOPROLOL
  4. FENTANYL. [Concomitant]
     Active Substance: FENTANYL
  5. LANSOPRAZOLE. [Concomitant]
     Active Substance: LANSOPRAZOLE
  6. RAMIPRIL. [Concomitant]
     Active Substance: RAMIPRIL
  7. SPIRONOLACTONE. [Concomitant]
     Active Substance: SPIRONOLACTONE
  8. XARELTO [Suspect]
     Active Substance: RIVAROXABAN
     Indication: ATRIAL FIBRILLATION
     Route: 048
     Dates: start: 20130301
  9. FRAGMIN [Suspect]
     Active Substance: DALTEPARIN SODIUM
     Indication: THROMBOSIS PROPHYLAXIS
     Route: 058
     Dates: start: 20140811
  10. XARELTO [Suspect]
     Active Substance: RIVAROXABAN
     Indication: CEREBROVASCULAR ACCIDENT PROPHYLAXIS
     Route: 048
     Dates: start: 20130301
  11. PARACETAMOL [Concomitant]
     Active Substance: ACETAMINOPHEN
  12. ZOPICLONE [Suspect]
     Active Substance: ZOPICLONE
  13. MIDODRINE [Concomitant]
     Active Substance: MIDODRINE

REACTIONS (5)
  - Lethargy [None]
  - Haematoma [None]
  - Malaise [None]
  - Muscle haemorrhage [None]
  - Haemoglobin decreased [None]

NARRATIVE: CASE EVENT DATE: 20140811
